FAERS Safety Report 24720671 (Version 1)
Quarter: 2024Q4

REPORT INFORMATION
  Report Type: Report from Study
  Country: PK (occurrence: PK)
  Receive Date: 20241211
  Receipt Date: 20241211
  Transmission Date: 20250114
  Serious: Yes (Death)
  Sender: ROCHE
  Company Number: PK-ROCHE-RCA5198276

PATIENT
  Age: 66 Year
  Sex: Female

DRUGS (5)
  1. AVASTIN [Suspect]
     Active Substance: BEVACIZUMAB
     Indication: Ovarian cancer
     Dosage: ONGOING:YES
     Route: 042
     Dates: start: 20240522, end: 20241016
  2. AVASTIN [Suspect]
     Active Substance: BEVACIZUMAB
     Dosage: ONGOING:YES
     Route: 042
     Dates: start: 20240522, end: 20241016
  3. AVASTIN [Suspect]
     Active Substance: BEVACIZUMAB
     Dosage: ONGOING:YES
     Route: 042
     Dates: start: 20240522, end: 20241016
  4. AVASTIN [Suspect]
     Active Substance: BEVACIZUMAB
     Dosage: ONGOING:YES
     Route: 042
     Dates: start: 20240522, end: 20241016
  5. AVASTIN [Suspect]
     Active Substance: BEVACIZUMAB
     Dosage: ONGOING:YES
     Route: 042
     Dates: start: 20240522, end: 20241016

REACTIONS (2)
  - Pneumonia [Fatal]
  - Respiratory failure [Fatal]

NARRATIVE: CASE EVENT DATE: 20241121
